FAERS Safety Report 5481628-7 (Version None)
Quarter: 2007Q4

REPORT INFORMATION
  Report Type: 
  Country: None (occurrence: None)
  Receive Date: 20071004
  Receipt Date: 20070927
  Transmission Date: 20080405
  Serious: Yes (Death)
  Sender: FDA-Public Use
  Company Number: 2007SP018807

PATIENT
  Age: 84 Year
  Sex: Male
  Weight: 90.5 kg

DRUGS (8)
  1. TEMODAR [Suspect]
     Indication: MALIGNANT MELANOMA
     Dosage: 300 MG; QD;
  2. NORVASC /00972401/ [Concomitant]
  3. LASIX [Concomitant]
  4. LOVASTATIN [Concomitant]
  5. ATENOLOL [Concomitant]
  6. COUMADIN [Concomitant]
  7. NEXIUM [Concomitant]
  8. OXYCODONE HCL [Concomitant]

REACTIONS (7)
  - ANOREXIA [None]
  - ASCITES [None]
  - GENERAL PHYSICAL HEALTH DETERIORATION [None]
  - MALIGNANT NEOPLASM PROGRESSION [None]
  - METASTATIC MALIGNANT MELANOMA [None]
  - NAUSEA [None]
  - OEDEMA [None]
